FAERS Safety Report 5257476-X (Version None)
Quarter: 2007Q1

REPORT INFORMATION
  Report Type: 
  Country: None (occurrence: None)
  Receive Date: 20070307
  Receipt Date: 20060815
  Transmission Date: 20070707
  Serious: No
  Sender: FDA-Public Use
  Company Number: 2006PV018500

PATIENT
  Age: 45 Year
  Sex: Female
  Weight: 136.4 kg

DRUGS (5)
  1. REQUIP [Suspect]
     Indication: RESTLESS LEGS SYNDROME
     Dosage: 1MG PER DAY
     Route: 048
     Dates: start: 20060718
  2. BYETTA [Suspect]
     Dosage: 5MCG TWICE PER DAY
     Route: 058
     Dates: start: 20060718
  3. GLIPIZIDE [Concomitant]
     Dates: start: 20010101
  4. METFORMIN HCL [Concomitant]
     Dates: start: 20010101
  5. TOPAMAX [Concomitant]

REACTIONS (4)
  - BLOOD GLUCOSE DECREASED [None]
  - BLOOD GLUCOSE INCREASED [None]
  - DRUG INTERACTION [None]
  - RESTLESS LEGS SYNDROME [None]
